FAERS Safety Report 7733000-4 (Version None)
Quarter: 2011Q3

REPORT INFORMATION
  Report Type: 
  Country: None (occurrence: None)
  Receive Date: 20110902
  Receipt Date: 20110902
  Transmission Date: 20111222
  Serious: Yes (Other)
  Sender: FDA-Public Use
  Company Number: None

PATIENT
  Sex: Male
  Weight: 87 kg

DRUGS (1)
  1. ENOXAPARIN [Suspect]
     Indication: DRUG THERAPY
     Dosage: 80MG Q 12 HOURS S.C.
     Route: 058
     Dates: start: 20110812, end: 20110818

REACTIONS (2)
  - INJECTION SITE HAEMORRHAGE [None]
  - ASTHENIA [None]
